FAERS Safety Report 26182007 (Version 1)
Quarter: 2025Q4

REPORT INFORMATION
  Report Type: Spontaneous
  Country: CN (occurrence: CN)
  Receive Date: 20251221
  Receipt Date: 20251221
  Transmission Date: 20260117
  Serious: Yes (Hospitalization, Other)
  Sender: Vantive US Healthcare
  Company Number: CN-VANTIVE-2025VAN005784

PATIENT
  Sex: Male

DRUGS (1)
  1. DIANEAL [Suspect]
     Active Substance: CALCIUM CHLORIDE\DEXTROSE\MAGNESIUM CHLORIDE\SODIUM CHLORIDE\SODIUM LACTATE
     Indication: Peritoneal dialysis
     Dosage: UNK

REACTIONS (3)
  - Cardiac failure [Recovering/Resolving]
  - Swelling [Recovering/Resolving]
  - Device operational issue [Recovered/Resolved]

NARRATIVE: CASE EVENT DATE: 20251212
